FAERS Safety Report 4987550-4 (Version None)
Quarter: 2006Q2

REPORT INFORMATION
  Report Type: 
  Country: None (occurrence: None)
  Receive Date: 20060501
  Receipt Date: 20050930
  Transmission Date: 20061013
  Serious: Yes (Other)
  Sender: FDA-Public Use
  Company Number: PR-MERCK-0510USA01641

PATIENT
  Age: 58 Year
  Sex: Male

DRUGS (8)
  1. VIOXX [Suspect]
     Indication: OSTEOARTHRITIS
     Route: 048
     Dates: start: 19991004
  2. PAROXETINE [Concomitant]
     Route: 065
  3. GLUCOTROL [Concomitant]
     Route: 065
  4. PLAVIX [Concomitant]
     Route: 065
  5. ALTACE [Concomitant]
     Route: 065
  6. AMBIEN [Concomitant]
     Route: 065
  7. AVANDAMET [Concomitant]
     Route: 065
  8. GLYBURIDE [Concomitant]
     Route: 065

REACTIONS (29)
  - ANGINA PECTORIS [None]
  - ANGIOPATHY [None]
  - ARRHYTHMIA [None]
  - ARTHRALGIA [None]
  - BACK PAIN [None]
  - CARDIOVASCULAR DISORDER [None]
  - CAROTID ARTERY ATHEROMA [None]
  - CEREBROVASCULAR ACCIDENT [None]
  - CONTUSION [None]
  - COUGH [None]
  - DEPRESSION [None]
  - DYSPNOEA [None]
  - GASTROOESOPHAGEAL REFLUX DISEASE [None]
  - HEADACHE [None]
  - HYPERTENSION [None]
  - JOINT SWELLING [None]
  - MUSCLE SPASMS [None]
  - MYOCARDIAL INFARCTION [None]
  - OEDEMA [None]
  - ORGAN FAILURE [None]
  - PALPITATIONS [None]
  - PROSTATITIS [None]
  - PRURITUS GENITAL [None]
  - PULMONARY EMBOLISM [None]
  - SHOULDER PAIN [None]
  - SINUSITIS [None]
  - THROMBOSIS [None]
  - TINNITUS [None]
  - TRANSIENT ISCHAEMIC ATTACK [None]
